FAERS Safety Report 13655485 (Version 2)
Quarter: 2017Q2

REPORT INFORMATION
  Report Type: Spontaneous
  Country: IT (occurrence: IT)
  Receive Date: 20170615
  Receipt Date: 20170620
  Transmission Date: 20170830
  Serious: Yes (Other)
  Sender: FDA-Public Use
  Company Number: IT-GLAXOSMITHKLINE-IT2017GSK091470

PATIENT
  Age: 58 Year

DRUGS (3)
  1. BREXIN [PIROXICAM] [Suspect]
     Active Substance: PIROXICAM BETADEX
     Indication: ARTHRITIS
     Dosage: 2 UNK, QD
     Route: 048
     Dates: start: 20170308, end: 20170310
  2. DICLOFENAC SODIUM. [Suspect]
     Active Substance: DICLOFENAC SODIUM
     Indication: PAIN
     Dosage: 1 UNK, QD
     Route: 048
     Dates: start: 20170305, end: 20170309
  3. TORADOL [Suspect]
     Active Substance: KETOROLAC TROMETHAMINE
     Indication: PAIN
     Dosage: 1 UNK, QD
     Route: 048
     Dates: start: 20170306, end: 20170309

REACTIONS (2)
  - Gastritis erosive [Recovering/Resolving]
  - Drug interaction [Unknown]

NARRATIVE: CASE EVENT DATE: 20170310
